FAERS Safety Report 7397954-0 (Version None)
Quarter: 2011Q2

REPORT INFORMATION
  Report Type: 
  Country: None (occurrence: None)
  Receive Date: 20110406
  Receipt Date: 20110331
  Transmission Date: 20111010
  Serious: Yes (Other)
  Sender: FDA-Public Use
  Company Number: US-BAYER-2011-028029

PATIENT
  Sex: Female
  Weight: 145 kg

DRUGS (12)
  1. BETASERON [Suspect]
     Dosage: 6 MIU, QOD, WEEKS 5-6
     Route: 058
  2. BETASERON [Suspect]
     Dosage: 4 MIU, QOD, WEEKS 3-4
     Route: 058
  3. SERTRALINE HYDROCHLORIDE [Concomitant]
     Dosage: 50 MG, UNK
  4. VITAMIN D [Concomitant]
     Dosage: 2000 U, UNK
  5. LEVOXYL [Concomitant]
     Dosage: 112 ?G, UNK
  6. LIPITOR [Concomitant]
     Dosage: 20 MG, UNK
  7. CALCITRIOL [Concomitant]
     Dosage: 0.5 ?G, UNK
  8. OMEPRAZOLE [Concomitant]
     Dosage: 20 MG, UNK
  9. BETASERON [Suspect]
     Indication: PRODUCT USED FOR UNKNOWN INDICATION
     Dosage: 2 MIU, QOD, WEEKS 1-2
     Route: 058
  10. BETASERON [Suspect]
     Dosage: 8 MIU, QOD, WEEKS 7+
     Route: 058
  11. NORTRIPTYLINE HYDROCHLORIDE [Concomitant]
     Dosage: 50 MG, UNK
  12. AMPHETAMINE AND DEXTROAMPHETAMINE SALTS [Concomitant]
     Dosage: 5 MG, UNK

REACTIONS (4)
  - MYALGIA [None]
  - CIRCULATORY COLLAPSE [None]
  - PALPITATIONS [None]
  - DEPRESSIVE SYMPTOM [None]
